FAERS Safety Report 5427426-1 (Version None)
Quarter: 2007Q3

REPORT INFORMATION
  Report Type: 
  Country: None (occurrence: None)
  Receive Date: 20070824
  Receipt Date: 20070824
  Transmission Date: 20080115
  Serious: No
  Sender: FDA-Public Use
  Company Number: None

PATIENT
  Age: 34 Year
  Sex: Female
  Weight: 53.5244 kg

DRUGS (1)
  1. EFFEXOR XR [Suspect]
     Indication: DEPRESSION
     Dosage: 150MG 1X/DAY PO
     Route: 048
     Dates: start: 20030101, end: 20070821

REACTIONS (1)
  - DRUG WITHDRAWAL SYNDROME [None]
